FAERS Safety Report 25097780 (Version 6)
Quarter: 2025Q4

REPORT INFORMATION
  Report Type: Spontaneous
  Country: US (occurrence: US)
  Receive Date: 20250320
  Receipt Date: 20251216
  Transmission Date: 20260118
  Serious: Yes (Other)
  Sender: SANOFI AVENTIS
  Company Number: US-SA-2025SA079916

PATIENT
  Age: 72 Year
  Sex: Female

DRUGS (1)
  1. DUPIXENT [Suspect]
     Active Substance: DUPILUMAB
     Indication: Neurodermatitis
     Dosage: 300 MG, QOW
     Route: 058

REACTIONS (8)
  - Atrial fibrillation [Unknown]
  - Insomnia [Unknown]
  - Pruritus [Recovering/Resolving]
  - Injection site pain [Unknown]
  - Neurodermatitis [Unknown]
  - Dermatitis [Unknown]
  - Rash [Unknown]
  - Skin irritation [Unknown]

NARRATIVE: CASE EVENT DATE: 20251101
